FAERS Safety Report 5901904-0 (Version None)
Quarter: 2008Q3

REPORT INFORMATION
  Report Type: 
  Country: None (occurrence: None)
  Receive Date: 20080925
  Receipt Date: 20080911
  Transmission Date: 20090109
  Serious: Yes (Other)
  Sender: FDA-Public Use
  Company Number: 2008AL010656

PATIENT
  Sex: Female

DRUGS (8)
  1. GABAPENTIN [Suspect]
     Dosage: 300 MG; TID
     Dates: start: 20080609, end: 20080625
  2. AMLODIPINE [Concomitant]
  3. RAMIPRIL [Concomitant]
  4. DIGOXIN [Concomitant]
  5. CHLORPHENAMINE [Concomitant]
  6. WARFARIN SODIUM [Concomitant]
  7. AUGMENTIN '125' [Concomitant]
  8. ACETAMINOPHEN W/ CODEINE [Concomitant]

REACTIONS (2)
  - ALANINE AMINOTRANSFERASE INCREASED [None]
  - BLOOD ALKALINE PHOSPHATASE INCREASED [None]
